FAERS Safety Report 12268862 (Version 1)
Quarter: 2016Q2

REPORT INFORMATION
  Report Type: Spontaneous
  Country: US (occurrence: US)
  Receive Date: 20160414
  Receipt Date: 20160414
  Transmission Date: 20160815
  Serious: Yes (Hospitalization, Other)
  Sender: FDA-Public Use
  Company Number: US-B.I. PHARMACEUTICALS,INC./RIDGEFIELD-2016-BI-22466BP

PATIENT
  Age: 62 Year
  Sex: Female

DRUGS (5)
  1. HYDROCHOLOROTHYAZIDE [Concomitant]
     Indication: HYPERTENSION
     Dosage: 12.5 MG
     Route: 065
  2. METFORMIN [Concomitant]
     Active Substance: METFORMIN HYDROCHLORIDE
     Indication: DIABETES MELLITUS
     Dosage: 1000 MG
     Route: 065
     Dates: start: 2014
  3. METOPROLOL. [Concomitant]
     Active Substance: METOPROLOL
     Indication: HEART RATE
     Dosage: 50 MG
     Route: 065
  4. QVAR [Concomitant]
     Active Substance: BECLOMETHASONE DIPROPIONATE
     Indication: CHRONIC OBSTRUCTIVE PULMONARY DISEASE
     Dosage: 40 MG
     Route: 055
  5. SPIRIVA [Suspect]
     Active Substance: TIOTROPIUM BROMIDE MONOHYDRATE
     Indication: CHRONIC OBSTRUCTIVE PULMONARY DISEASE
     Dosage: 18 MCG
     Route: 055
     Dates: start: 2001

REACTIONS (2)
  - Atrioventricular block [Recovered/Resolved]
  - Breast cancer [Not Recovered/Not Resolved]

NARRATIVE: CASE EVENT DATE: 20100816
